FAERS Safety Report 4322146-9 (Version None)
Quarter: 2004Q1

REPORT INFORMATION
  Report Type: 
  Country: None (occurrence: None)
  Receive Date: 20040319
  Receipt Date: 20040310
  Transmission Date: 20041129
  Serious: Yes (Other)
  Sender: FDA-Public Use
  Company Number: HQWYE744311MAR04

PATIENT
  Age: 57 Year
  Sex: Male

DRUGS (3)
  1. RAPAMUNE [Suspect]
     Indication: PROPHYLAXIS AGAINST TRANSPLANT REJECTION
     Dosage: ORAL
     Route: 048
  2. MYCOPHENOLATE MOFETIL (HYCOPHENOLATE MOFETIL) [Concomitant]
  3. TACROLIMUS (TACROLIMUS) [Concomitant]

REACTIONS (2)
  - DISEASE RECURRENCE [None]
  - HEPATITIS C [None]
